FAERS Safety Report 6993862-5 (Version None)
Quarter: 2010Q3

REPORT INFORMATION
  Report Type: 
  Country: None (occurrence: None)
  Receive Date: 20100917
  Receipt Date: 20100412
  Transmission Date: 20110219
  Serious: Yes (Other)
  Sender: FDA-Public Use
  Company Number: US-ASTRAZENECA-2009UW15932

PATIENT
  Age: 552 Month
  Sex: Male
  Weight: 76.7 kg

DRUGS (5)
  1. SEROQUEL [Suspect]
     Route: 048
     Dates: start: 20040628
  2. NORVASC [Concomitant]
     Dates: start: 20050801
  3. COZAAR [Concomitant]
     Dosage: 50-100 MG DAILY
     Route: 048
     Dates: start: 20050801
  4. CELEXA [Concomitant]
     Route: 048
     Dates: start: 20040601
  5. TRAZODONE HCL [Concomitant]
     Dates: start: 20040601

REACTIONS (2)
  - DIABETES MELLITUS [None]
  - ERECTILE DYSFUNCTION [None]
